FAERS Safety Report 6919714-4 (Version None)
Quarter: 2010Q3

REPORT INFORMATION
  Report Type: 
  Country: None (occurrence: None)
  Receive Date: 20100811
  Receipt Date: 20100524
  Transmission Date: 20110219
  Serious: Yes (Other)
  Sender: FDA-Public Use
  Company Number: US-BRISTOL-MYERS SQUIBB COMPANY-15118987

PATIENT
  Age: 56 Year
  Sex: Female

DRUGS (7)
  1. IXEMPRA KIT [Suspect]
     Indication: BREAST CANCER METASTATIC
  2. GEMZAR [Suspect]
     Indication: BREAST CANCER METASTATIC
  3. VINORELBINE [Suspect]
     Indication: BREAST CANCER METASTATIC
  4. TAMOXIFEN CITRATE [Suspect]
     Indication: BREAST CANCER METASTATIC
  5. FEMARA [Suspect]
     Indication: BREAST CANCER METASTATIC
  6. FASLODEX [Suspect]
     Indication: BREAST CANCER METASTATIC
  7. AROMASIN [Suspect]
     Indication: BREAST CANCER METASTATIC

REACTIONS (1)
  - MALIGNANT NEOPLASM PROGRESSION [None]
